FAERS Safety Report 6180316-1 (Version None)
Quarter: 2009Q2

REPORT INFORMATION
  Report Type: 
  Country: None (occurrence: None)
  Receive Date: 20090504
  Receipt Date: 20090504
  Transmission Date: 20091009
  Serious: Yes (Hospitalization)
  Sender: FDA-Public Use
  Company Number: None

PATIENT
  Age: 77 Year
  Sex: Female

DRUGS (1)
  1. SULFAMETHOXAZOLE AND TRIMETHOPRIM [Suspect]
     Dosage: 800MG/160 MG BID PO
     Route: 048
     Dates: start: 20090413, end: 20090422

REACTIONS (3)
  - CONSTIPATION [None]
  - DIARRHOEA [None]
  - PANCREATITIS [None]
